FAERS Safety Report 8770235 (Version 3)
Quarter: 2012Q4

REPORT INFORMATION
  Report Type: 
  Country: US (occurrence: US)
  Receive Date: 20120906
  Receipt Date: 20121024
  Transmission Date: 20130627
  Serious: Yes (Other)
  Sender: FDA-Public Use
  Company Number: US-ASTRAZENECA-2012SE65441

PATIENT
  Age: 69 Year
  Sex: Female

DRUGS (4)
  1. SYMBICORT PMDI [Suspect]
     Dosage: UNKNOWN STRENGTH AND FREQUENCY
     Route: 055
  2. PREDNISONE [Concomitant]
  3. SINGULAIR [Concomitant]
     Route: 048
  4. SPIRIVA [Concomitant]

REACTIONS (5)
  - Lung neoplasm malignant [Unknown]
  - Neoplasm malignant [Unknown]
  - Skin cancer [Unknown]
  - Chronic obstructive pulmonary disease [Unknown]
  - Dyspnoea [Unknown]
